FAERS Safety Report 5478410-3 (Version None)
Quarter: 2007Q4

REPORT INFORMATION
  Report Type: 
  Country: None (occurrence: None)
  Receive Date: 20071005
  Receipt Date: 20070925
  Transmission Date: 20080405
  Serious: Yes (Hospitalization, Other)
  Sender: FDA-Public Use
  Company Number: US-AMGEN-QUU244986

PATIENT
  Sex: Male

DRUGS (2)
  1. ENBREL [Suspect]
     Indication: RHEUMATOID ARTHRITIS
     Route: 058
     Dates: start: 20040901
  2. METHOTREXATE [Concomitant]
     Dates: start: 19950101

REACTIONS (7)
  - FALL [None]
  - OPEN FRACTURE [None]
  - ORCHITIS [None]
  - RHEUMATOID ARTHRITIS [None]
  - SCROTAL GANGRENE [None]
  - SPINAL FRACTURE [None]
  - TESTICULAR DISORDER [None]
